FAERS Safety Report 6390600-4 (Version None)
Quarter: 2009Q4

REPORT INFORMATION
  Report Type: 
  Country: None (occurrence: None)
  Receive Date: 20091006
  Receipt Date: 20090928
  Transmission Date: 20100525
  Serious: Yes (Hospitalization)
  Sender: FDA-Public Use
  Company Number: CA-JNJFOC-20091000350

PATIENT
  Age: 36 Year
  Sex: Female

DRUGS (6)
  1. TOPAMAX [Suspect]
     Indication: DRUG USE FOR UNKNOWN INDICATION
     Route: 048
  2. ZUCLOPENTHIXOL [Concomitant]
  3. BENZOTROPINE [Concomitant]
  4. LAMOTRIGINE [Concomitant]
  5. CLONAZEPAM [Concomitant]
  6. CITALOPRAM [Concomitant]

REACTIONS (5)
  - DIZZINESS [None]
  - FLAT AFFECT [None]
  - HEMIPLEGIA [None]
  - SOMNOLENCE [None]
  - TREMOR [None]
